FAERS Safety Report 25264246 (Version 5)
Quarter: 2025Q3

REPORT INFORMATION
  Report Type: Spontaneous
  Country: AR (occurrence: AR)
  Receive Date: 20250502
  Receipt Date: 20250919
  Transmission Date: 20251020
  Serious: Yes (Other)
  Sender: SANDOZ
  Company Number: AR-002147023-NVSC2025AR045799

PATIENT
  Age: 60 Year
  Sex: Female

DRUGS (11)
  1. KISQALI [Suspect]
     Active Substance: RIBOCICLIB SUCCINATE
     Dosage: 400 MG, QD (2 TABLETS)
     Route: 048
     Dates: start: 20250410
  2. KISQALI [Suspect]
     Active Substance: RIBOCICLIB SUCCINATE
     Dosage: 400 MG, QD ONCE A DAY
     Route: 048
     Dates: start: 20250319
  3. KISQALI [Suspect]
     Active Substance: RIBOCICLIB SUCCINATE
     Dosage: 600 MG, QD
     Route: 048
     Dates: start: 20250206
  4. KISQALI [Suspect]
     Active Substance: RIBOCICLIB SUCCINATE
     Indication: Breast cancer metastatic
     Dosage: 600 MG, QD (3 TABLETS)
     Route: 048
     Dates: start: 20250206
  5. KISQALI [Suspect]
     Active Substance: RIBOCICLIB SUCCINATE
     Route: 048
     Dates: start: 20250226
  6. ZOLEDRONIC ACID [Suspect]
     Active Substance: ZOLEDRONIC ACID
     Indication: Bone disorder
     Route: 042
     Dates: start: 202501
  7. PREGABALIN [Concomitant]
     Active Substance: PREGABALIN
     Indication: Arthralgia
     Dosage: 50 MG, QD
     Route: 065
     Dates: start: 202411
  8. FULVESTRANT [Interacting]
     Active Substance: FULVESTRANT
     Dosage: 2 DF, QMO
     Route: 065
  9. FULVESTRANT [Interacting]
     Active Substance: FULVESTRANT
     Route: 065
  10. FULVESTRANT [Interacting]
     Active Substance: FULVESTRANT
     Dosage: 500 MG, QMO (AMPOULE)
     Route: 030
     Dates: start: 20250206
  11. FULVESTRANT [Interacting]
     Active Substance: FULVESTRANT
     Indication: Breast cancer metastatic
     Dosage: 2 OF 250 MG/500 MG (MILLIGRAM) 500 MG, Q2W
     Route: 065
     Dates: start: 20250103

REACTIONS (16)
  - White blood cell count decreased [Recovered/Resolved]
  - Red cell distribution width decreased [Recovered/Resolved]
  - Mean platelet volume decreased [Unknown]
  - Blood cholesterol increased [Unknown]
  - Gastritis [Unknown]
  - Lymphocyte count increased [Recovered/Resolved]
  - Haematocrit decreased [Recovered/Resolved]
  - Red blood cell count decreased [Unknown]
  - Haematocrit decreased [Unknown]
  - Neutrophil count decreased [Recovered/Resolved]
  - White blood cell count decreased [Unknown]
  - Monocyte count decreased [Unknown]
  - Haemoglobin decreased [Unknown]
  - Aspartate aminotransferase increased [Unknown]
  - Blood alkaline phosphatase increased [Unknown]
  - Inappropriate schedule of product administration [Unknown]

NARRATIVE: CASE EVENT DATE: 20250301
